FAERS Safety Report 11153171 (Version 1)
Quarter: 2015Q2

REPORT INFORMATION
  Report Type: Report from Study
  Country: BR (occurrence: BR)
  Receive Date: 20150601
  Receipt Date: 20150601
  Transmission Date: 20150821
  Serious: Yes (Life-Threatening)
  Sender: FDA-Public Use
  Company Number: PHHY2015BR063972

PATIENT
  Sex: Female

DRUGS (3)
  1. FORASEQ [Suspect]
     Active Substance: BUDESONIDE\FORMOTEROL FUMARATE
     Dosage: 1 DF (12/400 MCG), TID (WHEN SHE WAS TIRED, WHEN THE WEATHER IS DRY OR IF SHE WAS ALLERGY)
     Route: 065
     Dates: start: 201404
  2. FORASEQ [Suspect]
     Active Substance: BUDESONIDE\FORMOTEROL FUMARATE
     Indication: ASTHMA
     Dosage: 1 DF (12/400 MCG), BID
     Route: 065
     Dates: start: 201404
  3. AEROLIN [Concomitant]
     Active Substance: ALBUTEROL
     Indication: PRODUCT USED FOR UNKNOWN INDICATION
     Dosage: UNK
     Route: 065

REACTIONS (4)
  - Device malfunction [Recovering/Resolving]
  - Fatigue [Recovering/Resolving]
  - Respiratory arrest [Recovering/Resolving]
  - Wrong technique in drug usage process [Recovering/Resolving]
